FAERS Safety Report 15776658 (Version 1)
Quarter: 2018Q4

REPORT INFORMATION
  Report Type: Spontaneous
  Country: US (occurrence: US)
  Receive Date: 20181229
  Receipt Date: 20181229
  Transmission Date: 20190205
  Serious: Yes (Hospitalization, Other)
  Sender: FDA-Public Use
  Company Number: None

PATIENT
  Age: 69 Year
  Sex: Female
  Weight: 83.25 kg

DRUGS (11)
  1. FIORICET [Concomitant]
     Active Substance: ACETAMINOPHEN\BUTALBITAL\CAFFEINE
  2. AIMOVIG [Suspect]
     Active Substance: ERENUMAB-AOOE
     Indication: MIGRAINE
     Dosage: ?          QUANTITY:1 INJECTION(S);OTHER FREQUENCY:28 DAYS;?
     Route: 058
     Dates: start: 20180606, end: 20181216
  3. FENOFIBRATE. [Concomitant]
     Active Substance: FENOFIBRATE
  4. DICLOFENAC SODIUM. [Concomitant]
     Active Substance: DICLOFENAC SODIUM
  5. ESTRADIOL. [Concomitant]
     Active Substance: ESTRADIOL
  6. ROSUVASTATIN CALCIUM. [Concomitant]
     Active Substance: ROSUVASTATIN CALCIUM
  7. LINZESS [Concomitant]
     Active Substance: LINACLOTIDE
  8. DHE INJECTION [Concomitant]
  9. ESOMEPRAZOLE. [Concomitant]
     Active Substance: ESOMEPRAZOLE MAGNESIUM
  10. LEVOTHYROXINE. [Concomitant]
     Active Substance: LEVOTHYROXINE
  11. ELETRIPTAN HYDROBROMIDE. [Concomitant]
     Active Substance: ELETRIPTAN HYDROBROMIDE

REACTIONS (7)
  - Cardiac pacemaker insertion [None]
  - Nausea [None]
  - Flushing [None]
  - Feeling abnormal [None]
  - Loss of consciousness [None]
  - Seizure [None]
  - Heart rate irregular [None]

NARRATIVE: CASE EVENT DATE: 20181218
